FAERS Safety Report 8951040 (Version 2)
Quarter: 2013Q1

REPORT INFORMATION
  Report Type: Spontaneous
  Country: US (occurrence: US)
  Receive Date: 20121207
  Receipt Date: 20130131
  Transmission Date: 20140127
  Serious: Yes (Other)
  Sender: FDA-Public Use
  Company Number: US-PFIZER INC-2012307825

PATIENT
  Age: 74 Year
  Sex: Female
  Weight: 62.13 kg

DRUGS (2)
  1. LYRICA [Suspect]
     Indication: PAIN IN EXTREMITY
     Dosage: UNK, 1 CAPSULE 2 TIMES PER DAY
     Route: 048
     Dates: start: 20121026
  2. LYRICA [Suspect]
     Dosage: 75 MG, 2X/DAY
     Route: 048
     Dates: start: 201211, end: 201212

REACTIONS (8)
  - Urinary tract infection [Unknown]
  - Weight increased [Unknown]
  - Blood pressure increased [Unknown]
  - Pruritus [Not Recovered/Not Resolved]
  - Urticaria [Unknown]
  - Local swelling [Unknown]
  - Neck pain [Recovered/Resolved]
  - Drug ineffective [Unknown]
